FAERS Safety Report 5135270-8 (Version None)
Quarter: 2006Q4

REPORT INFORMATION
  Report Type: 
  Country: None (occurrence: None)
  Receive Date: 20061026
  Receipt Date: 20061013
  Transmission Date: 20070319
  Serious: Yes (Hospitalization, Other)
  Sender: FDA-Public Use
  Company Number: US-AVENTIS-200618591US

PATIENT
  Sex: Male

DRUGS (6)
  1. LOVENOX [Suspect]
     Indication: ATRIAL FIBRILLATION
     Dosage: DOSE: UNK
     Dates: start: 20050301, end: 20050501
  2. ASPIRIN [Concomitant]
  3. ASPIRIN [Concomitant]
  4. LANTUS [Concomitant]
     Indication: DIABETES MELLITUS INSULIN-DEPENDENT
     Dosage: DOSE: 50-50
     Route: 058
     Dates: start: 20051101
  5. ^OTHER^ LILLY INSULIN [Concomitant]
     Dosage: DOSE: UNK
     Dates: end: 20051101
  6. HUMALOG                            /00030501/ [Concomitant]
     Indication: DIABETES MELLITUS INSULIN-DEPENDENT
     Dosage: DOSE: 3 UNITS PER NET CARB

REACTIONS (5)
  - BEDRIDDEN [None]
  - CONDITION AGGRAVATED [None]
  - INJECTION SITE BRUISING [None]
  - INJECTION SITE DISCOMFORT [None]
  - INJECTION SITE PAIN [None]
